FAERS Safety Report 7890212-7 (Version None)
Quarter: 2011Q4

REPORT INFORMATION
  Report Type: 
  Country: None (occurrence: None)
  Receive Date: 20111103
  Receipt Date: 20110729
  Transmission Date: 20120403
  Serious: No
  Sender: FDA-Public Use
  Company Number: US-AMGEN-USASP2011014216

PATIENT
  Age: 53 Year
  Sex: Male

DRUGS (2)
  1. ENBREL [Suspect]
     Indication: PSORIATIC ARTHROPATHY
     Dosage: 50 MG, QWK
     Dates: start: 20040401
  2. METHOTREXATE [Concomitant]
     Dosage: 1 MG, QWK
     Dates: start: 20040401

REACTIONS (9)
  - FEELING ABNORMAL [None]
  - COUGH [None]
  - MUSCULOSKELETAL STIFFNESS [None]
  - PAIN [None]
  - SINUS CONGESTION [None]
  - SPUTUM INCREASED [None]
  - EXERCISE TOLERANCE DECREASED [None]
  - WEIGHT INCREASED [None]
  - SINUSITIS [None]
